FAERS Safety Report 23883109 (Version 1)
Quarter: 2024Q2

REPORT INFORMATION
  Report Type: Spontaneous
  Country: US (occurrence: US)
  Receive Date: 20240522
  Receipt Date: 20240522
  Transmission Date: 20240716
  Serious: Yes (Life-Threatening, Hospitalization, Other)
  Sender: FDA-Public Use
  Company Number: None

PATIENT
  Age: 89 Year
  Sex: Female

DRUGS (20)
  1. LANTUS [Concomitant]
     Active Substance: INSULIN GLARGINE
     Dosage: 17 UNITS, FREQUENCY: DAILY
  2. MEGESTROL [Concomitant]
     Active Substance: MEGESTROL
  3. CEFTRIAXONE [Concomitant]
     Active Substance: CEFTRIAXONE\CEFTRIAXONE SODIUM
     Indication: Pneumonia
  4. SPIRIVA [Concomitant]
     Active Substance: TIOTROPIUM BROMIDE MONOHYDRATE
     Dosage: 1 PUFF, FREQUENCY: DAILY
  5. NIFEDIPINE [Concomitant]
     Active Substance: NIFEDIPINE
     Dosage: QHS (EVERY NIGHT)
  6. LOSARTAN [Concomitant]
     Active Substance: LOSARTAN
  7. OXYGEN [Concomitant]
     Active Substance: OXYGEN
     Indication: Chronic obstructive pulmonary disease
     Dosage: HOME OXYGEN
  8. DOXYCYCLINE [Concomitant]
     Active Substance: DOXYCYCLINE\DOXYCYCLINE HYCLATE
     Indication: Pneumonia
  9. BUMETANIDE [Concomitant]
     Active Substance: BUMETANIDE
  10. NOVOLOG [Concomitant]
     Active Substance: INSULIN ASPART
  11. CLOPIDOGREL [Concomitant]
     Active Substance: CLOPIDOGREL BISULFATE
     Dosage: QHS (EVERY NIGHT)
  12. OXYCODONE [Interacting]
     Active Substance: OXYCODONE\OXYCODONE HYDROCHLORIDE
     Indication: Analgesic therapy
     Dosage: AS NECESSARY
  13. ACETAMINOPHEN\HYDROCODONE [Concomitant]
     Active Substance: ACETAMINOPHEN\HYDROCODONE
  14. ASPIRIN [Concomitant]
     Active Substance: ASPIRIN
  15. VENLAFAXINE [Interacting]
     Active Substance: VENLAFAXINE HYDROCHLORIDE
     Indication: Depression
  16. ALBUTEROL\IPRATROPIUM [Concomitant]
     Active Substance: ALBUTEROL\IPRATROPIUM
     Dosage: AS NECESSARY
  17. DOXAZOSIN [Concomitant]
     Active Substance: DOXAZOSIN MESYLATE
     Dosage: QHS (EVERY NIGHT)
  18. ATORVASTATIN [Concomitant]
     Active Substance: ATORVASTATIN
     Dosage: QHS (EVERY NIGHT)
  19. TRIAMCINOLONE [Concomitant]
     Active Substance: TRIAMCINOLONE
     Dosage: AS NECESSARY
     Route: 061
  20. MEMANTINE [Concomitant]
     Active Substance: MEMANTINE
     Dosage: QHS

REACTIONS (4)
  - Serotonin syndrome [Recovering/Resolving]
  - Encephalopathy [Recovering/Resolving]
  - Atrioventricular block first degree [Recovering/Resolving]
  - Drug interaction [Recovering/Resolving]
